FAERS Safety Report 4751573-0 (Version None)
Quarter: 2005Q3

REPORT INFORMATION
  Report Type: 
  Country: None (occurrence: None)
  Receive Date: 20050824
  Receipt Date: 20050728
  Transmission Date: 20060218
  Serious: Yes (Hospitalization, Other)
  Sender: FDA-Public Use
  Company Number: 2005-07-0850

PATIENT
  Age: 62 Year
  Sex: Female

DRUGS (8)
  1. ONON [Suspect]
     Route: 048
     Dates: start: 20050606, end: 20050711
  2. FLUTIDE [Suspect]
     Dosage: 400VA SEE DOSAGE TEXT
     Route: 055
     Dates: start: 20050606, end: 20050711
  3. BECLOMETHASONE DIPROPIONATE [Concomitant]
  4. TULOBUTEROL HYDROCHLORIDE [Concomitant]
  5. BRONCHODILATORS [Concomitant]
  6. PROCATEROL HCL [Concomitant]
  7. BETAMETHASONE [Concomitant]
  8. SALBUTAMOL SULPHATE [Concomitant]
     Route: 055

REACTIONS (8)
  - ALLERGIC GRANULOMATOUS ANGIITIS [None]
  - ARTHRALGIA [None]
  - CONDITION AGGRAVATED [None]
  - DRUG ERUPTION [None]
  - ERYTHEMA [None]
  - GENERALISED ERYTHEMA [None]
  - RASH [None]
  - VASCULITIS [None]
